FAERS Safety Report 8104860-2 (Version None)
Quarter: 2012Q1

REPORT INFORMATION
  Report Type: 
  Country: None (occurrence: None)
  Receive Date: 20120201
  Receipt Date: 20120125
  Transmission Date: 20120608
  Serious: Yes (Other)
  Sender: FDA-Public Use
  Company Number: GB-GILEAD-2011-0044189

PATIENT
  Sex: Female

DRUGS (14)
  1. METFORMIN HCL [Concomitant]
  2. FERROUS SULFATE TAB [Concomitant]
  3. ZIDOVUDINE [Concomitant]
  4. EMTRICITABINE/TENOFOVIR DISOPROXIL FUMARATE [Suspect]
     Indication: HIV INFECTION
     Dosage: 1 DF, QD
     Route: 048
     Dates: start: 20100915, end: 20110913
  5. EMTRICITABINE/TENOFOVIR DISOPROXIL FUMARATE [Suspect]
     Dosage: 1 UNK, UNK
     Route: 048
     Dates: start: 20100316, end: 20100615
  6. ATAZANAVIR [Suspect]
     Indication: HIV INFECTION
     Dosage: 300 MG, QD
     Route: 048
     Dates: start: 20100915, end: 20110913
  7. EFAVIRENZ [Suspect]
     Indication: HIV INFECTION
     Dosage: 600 MG, QD
     Route: 048
     Dates: start: 20100316, end: 20100615
  8. RAMIPRIL [Concomitant]
  9. EFAVIRENZ/EMTRICITABINE/TENOFOVIR DISOPROXIL FUMARATE [Suspect]
     Dosage: 1 UNK, UNK
     Route: 048
     Dates: start: 20100615, end: 20100915
  10. LABETALOL HCL [Concomitant]
  11. ASPIRIN [Concomitant]
  12. NORVIR [Suspect]
     Indication: HIV INFECTION
     Dosage: 100 MG, QD
     Route: 048
     Dates: start: 20100915, end: 20110913
  13. INSULIN [Concomitant]
  14. EFAVIRENZ/EMTRICITABINE/TENOFOVIR DISOPROXIL FUMARATE [Suspect]
     Indication: HIV INFECTION
     Dosage: 1 DF, QD
     Route: 048
     Dates: start: 20110913

REACTIONS (4)
  - HEADACHE [None]
  - CAESAREAN SECTION [None]
  - PREGNANCY [None]
  - LIVE BIRTH [None]
